FAERS Safety Report 23757907 (Version 11)
Quarter: 2024Q3

REPORT INFORMATION
  Report Type: Spontaneous
  Country: US (occurrence: US)
  Receive Date: 20240418
  Receipt Date: 20240829
  Transmission Date: 20241016
  Serious: No
  Sender: NOVARTIS
  Company Number: US-002147023-NVSC2024US082284

PATIENT

DRUGS (1)
  1. KESIMPTA [Suspect]
     Active Substance: OFATUMUMAB
     Indication: Product used for unknown indication
     Dosage: UNK
     Route: 065

REACTIONS (8)
  - Feeling abnormal [Unknown]
  - Heat illness [Unknown]
  - Blood pressure increased [Unknown]
  - Stress [Unknown]
  - Lymphocyte count decreased [Unknown]
  - Fatigue [Unknown]
  - Influenza like illness [Unknown]
  - Therapeutic response decreased [Unknown]
